FAERS Safety Report 21075699 (Version 1)
Quarter: 2022Q3

REPORT INFORMATION
  Report Type: Spontaneous
  Country: US (occurrence: None)
  Receive Date: 20220712
  Receipt Date: 20220712
  Transmission Date: 20221026
  Serious: Yes (unspecified)
  Sender: FDA-Public Use
  Company Number: None

PATIENT
  Age: 10 Year
  Sex: Male

DRUGS (1)
  1. HUMIRA [Suspect]
     Active Substance: ADALIMUMAB
     Indication: Crohn^s disease
     Dosage: 40 MG EVERY 2 WEEKS SUBCUTANEOUS?
     Route: 058
     Dates: start: 20201214, end: 20220711

REACTIONS (2)
  - Wound [None]
  - Impaired healing [None]

NARRATIVE: CASE EVENT DATE: 20220711
